FAERS Safety Report 14345655 (Version 2)
Quarter: 2022Q1

REPORT INFORMATION
  Report Type: Spontaneous
  Country: ES (occurrence: ES)
  Receive Date: 20180103
  Receipt Date: 20220109
  Transmission Date: 20220424
  Serious: Yes (Life-Threatening, Hospitalization, Other)
  Sender: FDA-Public Use
  Company Number: ES-AUROBINDO-AUR-APL-2017-48628

PATIENT
  Age: 41 Year
  Sex: Female

DRUGS (2)
  1. CITALOPRAM HYDROBROMIDE [Interacting]
     Active Substance: CITALOPRAM HYDROBROMIDE
     Indication: Product used for unknown indication
     Dosage: 900 MILLIGRAM
     Route: 048
     Dates: start: 20170401, end: 20170401
  2. SERTRALINE [Interacting]
     Active Substance: SERTRALINE HYDROCHLORIDE
     Indication: Product used for unknown indication
     Dosage: 3000 MG, 30 CPS ; IN TOTAL
     Route: 048
     Dates: start: 20170401, end: 20170401

REACTIONS (3)
  - Pneumonitis aspiration [Recovered/Resolved]
  - Depressed level of consciousness [Recovered/Resolved]
  - Hyperamylasaemia [Recovered/Resolved]

NARRATIVE: CASE EVENT DATE: 20170401
